FAERS Safety Report 18745306 (Version 1)
Quarter: 2021Q1

REPORT INFORMATION
  Report Type: Report from Study
  Country: BR (occurrence: BR)
  Receive Date: 20210115
  Receipt Date: 20210115
  Transmission Date: 20210419
  Serious: Yes (Other)
  Sender: FDA-Public Use
  Company Number: BR-UCBSA-2020031337

PATIENT
  Age: 38 Year
  Sex: Female
  Weight: 97 kg

DRUGS (5)
  1. CERTOLIZUMAB PEGOL RA [Suspect]
     Active Substance: CERTOLIZUMAB PEGOL
     Indication: RHEUMATOID ARTHRITIS
     Dosage: 400 MILLIGRAM, EV 2 WEEKS(QOW)
     Route: 058
     Dates: start: 2019
  2. GARASONE [BETAMETHASONE;GENTAMICIN] [Concomitant]
  3. CEFALEXINA [CEFALEXIN] [Concomitant]
     Indication: URINARY TRACT INFECTION
  4. CERTOLIZUMAB PEGOL RA [Suspect]
     Active Substance: CERTOLIZUMAB PEGOL
     Dosage: 400 MILLIGRAM, EV 4 WEEKS
     Route: 058
  5. PREDNISONA [Concomitant]
     Active Substance: PREDNISONE
     Indication: PAIN
     Dosage: 10 MILLIGRAM, ONCE DAILY (QD)
     Route: 048
     Dates: start: 20200630

REACTIONS (13)
  - Arrhythmia [Unknown]
  - Conjunctivitis [Recovering/Resolving]
  - Arthralgia [Recovering/Resolving]
  - Blood pressure increased [Unknown]
  - Abdominal pain [Recovered/Resolved]
  - Blood glucose decreased [Recovering/Resolving]
  - Urinary tract infection [Recovered/Resolved]
  - Heart rate increased [Unknown]
  - Pyrexia [Recovered/Resolved]
  - Maternal exposure during pregnancy [Unknown]
  - Myocardial infarction [Recovering/Resolving]
  - Asthenia [Recovered/Resolved]
  - Decreased appetite [Recovered/Resolved]

NARRATIVE: CASE EVENT DATE: 2019
